FAERS Safety Report 9879901 (Version 2)
Quarter: 2014Q3

REPORT INFORMATION
  Report Type: Report from Study
  Country: FR (occurrence: FR)
  Receive Date: 20140206
  Receipt Date: 20140728
  Transmission Date: 20150326
  Serious: Yes (Hospitalization, Other)
  Sender: FDA-Public Use
  Company Number: FR-ROCHE-1340846

PATIENT
  Sex: Female

DRUGS (12)
  1. CORTANCYL [Concomitant]
     Active Substance: PREDNISONE
     Route: 065
  2. ENBREL [Concomitant]
     Active Substance: ETANERCEPT
     Route: 065
     Dates: start: 20100324, end: 20110112
  3. RITUXIMAB [Suspect]
     Active Substance: RITUXIMAB
     Indication: RHEUMATOID ARTHRITIS
     Route: 041
     Dates: start: 20080228
  4. RITUXIMAB [Suspect]
     Active Substance: RITUXIMAB
     Route: 041
     Dates: start: 20080313, end: 20080416
  5. REMICADE [Concomitant]
     Active Substance: INFLIXIMAB
     Dosage: FOR 57 MONTHS, STOPPED AFTER LOSS OF EFFICACY
     Route: 065
  6. REMICADE [Concomitant]
     Active Substance: INFLIXIMAB
     Route: 065
     Dates: start: 20110211
  7. ORENCIA [Concomitant]
     Active Substance: ABATACEPT
     Route: 065
     Dates: start: 201210
  8. CORTANCYL [Concomitant]
     Active Substance: PREDNISONE
     Route: 065
  9. REMICADE [Concomitant]
     Active Substance: INFLIXIMAB
     Route: 065
     Dates: start: 20081210
  10. REMICADE [Concomitant]
     Active Substance: INFLIXIMAB
     Route: 065
  11. METHOTREXATE (METHOTREXATE SODIUM) [Concomitant]
     Active Substance: METHOTREXATE SODIUM
     Route: 065
  12. REMICADE [Concomitant]
     Active Substance: INFLIXIMAB
     Route: 065
     Dates: end: 20120321

REACTIONS (11)
  - Shoulder arthroplasty [Not Recovered/Not Resolved]
  - Tibia fracture [Not Recovered/Not Resolved]
  - Ulnar neuritis [Unknown]
  - Infection [Unknown]
  - Escherichia urinary tract infection [Recovered/Resolved]
  - Abscess limb [Recovered/Resolved]
  - Tendonitis [Unknown]
  - Ear infection [Recovered/Resolved]
  - Cervicobrachial syndrome [Unknown]
  - Arthrodesis [Recovered/Resolved]
  - Haematoma [Unknown]

NARRATIVE: CASE EVENT DATE: 200804
